FAERS Safety Report 9338089 (Version 3)
Quarter: 2013Q3

REPORT INFORMATION
  Report Type: Report from Study
  Country: CO (occurrence: CO)
  Receive Date: 20130610
  Receipt Date: 20130716
  Transmission Date: 20140515
  Serious: Yes (Hospitalization, Other)
  Sender: FDA-Public Use
  Company Number: CO-ROCHE-1234375

PATIENT
  Age: 24 Year
  Sex: Female

DRUGS (1)
  1. VALIXA [Suspect]
     Indication: RENAL TRANSPLANT
     Route: 048
     Dates: start: 20130211

REACTIONS (2)
  - Cytomegalovirus chorioretinitis [Not Recovered/Not Resolved]
  - Blindness [Unknown]
